FAERS Safety Report 16957123 (Version 2)
Quarter: 2019Q4

REPORT INFORMATION
  Report Type: Spontaneous
  Country: NL (occurrence: NL)
  Receive Date: 20191024
  Receipt Date: 20191105
  Transmission Date: 20200122
  Serious: Yes (Other)
  Sender: FDA-Public Use
  Company Number: NL-PFIZER INC-2019447286

PATIENT
  Age: 7 Year
  Sex: Male

DRUGS (7)
  1. TIGECYCLINE. [Suspect]
     Active Substance: TIGECYCLINE
     Indication: MASTOIDITIS
     Dosage: 2.4 MG/KG, DAILY IN 2 DOSES
     Route: 042
  2. CLOFAZIMINE [Suspect]
     Active Substance: CLOFAZIMINE
     Indication: MASTOIDITIS
     Dosage: 50MG ONCE DAILY; IF WEIGHT }40KG, THEN 100MG ONCE DAILY)
     Route: 048
  3. IMIPENEM AND CILASTATIN [Suspect]
     Active Substance: CILASTATIN SODIUM\IMIPENEM
     Indication: MASTOIDITIS
     Dosage: 5/5 MG/ML; THREE DROPS THREE TIMES DAILY
     Route: 061
  4. TIGECYCLINE. [Suspect]
     Active Substance: TIGECYCLINE
     Indication: MASTOIDITIS
     Dosage: 5 MG/ML; THREE DROPS THREE TIMES DAILY
     Route: 061
  5. AZITHROMYCIN ANHYDROUS. [Suspect]
     Active Substance: AZITHROMYCIN ANHYDROUS
     Indication: MASTOIDITIS
     Dosage: 10 MG/KG, 1X/DAY
     Route: 048
  6. IMIPENEM AND CILASTATIN [Suspect]
     Active Substance: CILASTATIN SODIUM\IMIPENEM
     Indication: MASTOIDITIS
     Dosage: 60/60 MG/KG/DAY IN 2-4 DOSES
     Route: 042
  7. MINOCYCLINE [Concomitant]
     Active Substance: MINOCYCLINE HYDROCHLORIDE
     Indication: MASTOIDITIS
     Dosage: UNK
     Route: 048

REACTIONS (5)
  - Hypertriglyceridaemia [Unknown]
  - Nausea [Unknown]
  - Hepatotoxicity [Unknown]
  - Vomiting [Unknown]
  - Blood cholesterol increased [Unknown]
